FAERS Safety Report 6152208-5 (Version None)
Quarter: 2009Q2

REPORT INFORMATION
  Report Type: 
  Country: None (occurrence: None)
  Receive Date: 20090410
  Receipt Date: 20080612
  Transmission Date: 20091009
  Serious: Yes (Other)
  Sender: FDA-Public Use
  Company Number: US-ASTRAZENECA-2008UW11803

PATIENT
  Age: 57 Year
  Sex: Male
  Weight: 97.1 kg

DRUGS (4)
  1. ATENOLOL [Suspect]
     Indication: ATRIAL FIBRILLATION
     Dosage: AS NEEDED
     Route: 048
     Dates: start: 20070501, end: 20071001
  2. UROXATRAL [Suspect]
     Indication: PROSTATOMEGALY
     Route: 048
     Dates: end: 20080527
  3. SOTALOL HYDROCHLORIDE [Concomitant]
     Indication: ATRIAL FIBRILLATION
     Route: 048
     Dates: start: 20071001
  4. THYROID TAB [Concomitant]
     Route: 048
     Dates: start: 20070101, end: 20070101

REACTIONS (6)
  - ABDOMINAL PAIN [None]
  - ATRIAL FIBRILLATION [None]
  - FATIGUE [None]
  - HYPOTENSION [None]
  - MYALGIA [None]
  - PAIN [None]
